FAERS Safety Report 12995313 (Version 5)
Quarter: 2016Q4

REPORT INFORMATION
  Report Type: Spontaneous
  Country: IT (occurrence: IT)
  Receive Date: 20161202
  Receipt Date: 20161221
  Transmission Date: 20170207
  Serious: Yes (Death, Other)
  Sender: FDA-Public Use
  Company Number: IT-TEVA-715927ISR

PATIENT
  Age: 5 Year
  Sex: Female

DRUGS (3)
  1. BEVACIZUMAB [Suspect]
     Active Substance: BEVACIZUMAB
     Indication: NEPHROBLASTOMA
     Dosage: 15 MG/KG ON DAY 1, EVERY 3 WEEKS
     Route: 042
  2. VINCRISTINE [Suspect]
     Active Substance: VINCRISTINE
     Indication: NEPHROBLASTOMA
     Dosage: 1.5 MG/M2 DAILY; 1.5 MG/ M2 ON DAY 1 AND 8, EVERY 3 WEEKS
     Route: 042
  3. IRINOTECAN [Suspect]
     Active Substance: IRINOTECAN
     Indication: NEPHROBLASTOMA
     Dosage: 20 MG/M2 DAILY; 20 MG/M2 ON DAY 1-5 AND DAY 8-12, EVERY 3 WEEKS
     Route: 042

REACTIONS (3)
  - Death [Fatal]
  - Haematotoxicity [Unknown]
  - Diarrhoea [Unknown]
